FAERS Safety Report 18704258 (Version 1)
Quarter: 2021Q1

REPORT INFORMATION
  Report Type: Spontaneous
  Country: US (occurrence: US)
  Receive Date: 20210106
  Receipt Date: 20210106
  Transmission Date: 20210419
  Serious: No
  Sender: FDA-Public Use
  Company Number: US-ALK-ABELLO A/S-2020AA004289

PATIENT

DRUGS (8)
  1. TAE BULK 239 SORGHUM HALEPENSE [Suspect]
     Active Substance: SORGHUM HALEPENSE POLLEN
     Indication: HYPERSENSITIVITY
     Route: 060
  2. TAE BULK 157 ACER NEGUNDO [Suspect]
     Active Substance: ACER NEGUNDO POLLEN
     Indication: HYPERSENSITIVITY
     Route: 060
  3. SINGULAIR [Concomitant]
     Active Substance: MONTELUKAST SODIUM
     Dosage: UNK
  4. STAE BULK 555 CAT HAIR (FELIS DOMESTICUS) [Suspect]
     Active Substance: FELIS CATUS HAIR
     Indication: HYPERSENSITIVITY
     Route: 060
  5. TAE BULK 366 IVA CILIATA [Suspect]
     Active Substance: IVA ANNUA POLLEN
     Indication: HYPERSENSITIVITY
     Route: 060
  6. TAE BULK 510 [Suspect]
     Active Substance: DERMATOPHAGOIDES FARINAE\DERMATOPHAGOIDES PTERONYSSINUS
     Indication: HYPERSENSITIVITY
     Route: 060
  7. TAE BULK 1276 (BLATTELLA GERMANICA\PERIPLANETA AMERICANA) [Suspect]
     Active Substance: BLATTELLA GERMANICA\PERIPLANETA AMERICANA
     Indication: HYPERSENSITIVITY
     Route: 060
  8. BENADRYL [Concomitant]
     Active Substance: DIPHENHYDRAMINE HYDROCHLORIDE
     Dosage: UNK UNK, PRN

REACTIONS (2)
  - Off label use [Unknown]
  - Incorrect route of product administration [Unknown]
